FAERS Safety Report 11750548 (Version 1)
Quarter: 2015Q4

REPORT INFORMATION
  Report Type: Spontaneous
  Country: US (occurrence: None)
  Receive Date: 20151117
  Receipt Date: 20151117
  Transmission Date: 20160304
  Serious: No
  Sender: FDA-Public Use
  Company Number: None

PATIENT
  Age: 57 Year
  Sex: Female
  Weight: 118.84 kg

DRUGS (11)
  1. HARVONI [Suspect]
     Active Substance: LEDIPASVIR\SOFOSBUVIR
     Indication: HEPATITIS C
     Dosage: 1 PILL QD ORAL
     Route: 048
  2. BUMEX [Concomitant]
     Active Substance: BUMETANIDE
  3. MVI [Concomitant]
     Active Substance: VITAMINS
  4. OXYCODONE [Concomitant]
     Active Substance: OXYCODONE
  5. SYNTHROID [Concomitant]
     Active Substance: LEVOTHYROXINE SODIUM
  6. TRAZODONE [Concomitant]
     Active Substance: TRAZODONE HYDROCHLORIDE
  7. CYCLOBENZAPRINE [Concomitant]
     Active Substance: CYCLOBENZAPRINE
  8. SPIRONALACTONE [Concomitant]
     Active Substance: SPIRONOLACTONE
  9. MAGOD [Concomitant]
  10. ENALAPRIL [Concomitant]
     Active Substance: ENALAPRIL
  11. OMEPRAZOLE. [Concomitant]
     Active Substance: OMEPRAZOLE

REACTIONS (1)
  - Rash [None]

NARRATIVE: CASE EVENT DATE: 20151116
